FAERS Safety Report 8259597-6 (Version None)
Quarter: 2012Q2

REPORT INFORMATION
  Report Type: 
  Country: None (occurrence: None)
  Receive Date: 20120404
  Receipt Date: 20120329
  Transmission Date: 20120825
  Serious: Yes (Other)
  Sender: FDA-Public Use
  Company Number: PHEH2012US005766

PATIENT
  Sex: Female
  Weight: 76.644 kg

DRUGS (1)
  1. RECLAST [Suspect]
     Indication: OSTEOPOROSIS
     Dosage: 5 MG, PER YEAR
     Route: 042
     Dates: start: 20120302

REACTIONS (3)
  - INFLUENZA LIKE ILLNESS [None]
  - UPPER RESPIRATORY TRACT INFECTION [None]
  - HEADACHE [None]
